FAERS Safety Report 14648068 (Version 1)
Quarter: 2018Q1

REPORT INFORMATION
  Report Type: Spontaneous
  Country: ES (occurrence: ES)
  Receive Date: 20180316
  Receipt Date: 20180316
  Transmission Date: 20180509
  Serious: Yes (Hospitalization)
  Sender: FDA-Public Use
  Company Number: ES-TEVA-2018-ES-868341

PATIENT
  Age: 82 Year
  Sex: Female

DRUGS (8)
  1. VALSARTAN (7423A) [Concomitant]
     Route: 048
  2. BISOPROLOL (2328A) [Concomitant]
     Active Substance: BISOPROLOL
     Route: 048
  3. OPTOVITE B12 1.000 MICROGRAMS INJECTABLE SOLUTION, 5 BLISTERS 2 ML [Concomitant]
     Dosage: 1 AT BREAKFAST
  4. ACETYLSALICYLIC ACID [Interacting]
     Active Substance: ASPIRIN
     Dosage: 100 MG EVERY 24 HOURS
  5. CLOPIDOGREL [Suspect]
     Active Substance: CLOPIDOGREL BISULFATE
     Indication: CORONARY ARTERIAL STENT INSERTION
     Dosage: 75 MG EVERY 24 HOURS
     Route: 048
  6. ATORVASTATINA (7400A) [Concomitant]
     Active Substance: ATORVASTATIN
     Dosage: 80 MG EVERY 24 HOURS
  7. XARELTO [Interacting]
     Active Substance: RIVAROXABAN
     Indication: ATRIAL FIBRILLATION
     Dosage: 1 TABLET EVERY 24 HOURS
     Route: 048
  8. ALDACTONE 100 MG FILM-COATED TABLETS, 20 TABLETS [Concomitant]
     Route: 048

REACTIONS (2)
  - Gastroduodenal haemorrhage [Recovered/Resolved]
  - Drug interaction [Unknown]
